FAERS Safety Report 10476047 (Version 2)
Quarter: 2014Q4

REPORT INFORMATION
  Report Type: Spontaneous
  Country: FR (occurrence: FR)
  Receive Date: 20140925
  Receipt Date: 20141001
  Transmission Date: 20150528
  Serious: Yes (Other)
  Sender: FDA-Public Use
  Company Number: FR-PFIZER INC-2014263255

PATIENT
  Sex: Male
  Weight: 2.97 kg

DRUGS (1)
  1. CYTOTEC [Suspect]
     Active Substance: MISOPROSTOL
     Indication: LABOUR INDUCTION
     Dosage: 50 UG, SINGLE
     Route: 064
     Dates: start: 20130416, end: 20130416

REACTIONS (3)
  - Cerebrovascular accident [Unknown]
  - Maternal exposure during delivery [Unknown]
  - Hemiplegia [Unknown]

NARRATIVE: CASE EVENT DATE: 20130416
